FAERS Safety Report 18472780 (Version 1)
Quarter: 2020Q4

REPORT INFORMATION
  Report Type: Spontaneous
  Country: US (occurrence: US)
  Receive Date: 20201106
  Receipt Date: 20201106
  Transmission Date: 20210114
  Serious: No
  Sender: FDA-Public Use
  Company Number: US-009507513-2010USA011714

PATIENT
  Age: 22 Year
  Sex: Female
  Weight: 61.22 kg

DRUGS (1)
  1. NEXPLANON [Suspect]
     Active Substance: ETONOGESTREL
     Dosage: 68 MILLIGRAM EVERY 3 YEARS, IN LEFT UPPER ARM
     Route: 059
     Dates: start: 20201026

REACTIONS (3)
  - Device breakage [Not Recovered/Not Resolved]
  - Implant site erythema [Unknown]
  - Device kink [Not Recovered/Not Resolved]

NARRATIVE: CASE EVENT DATE: 202010
